FAERS Safety Report 7906993-X (Version None)
Quarter: 2011Q4

REPORT INFORMATION
  Report Type: 
  Country: None (occurrence: None)
  Receive Date: 20111109
  Receipt Date: 20111109
  Transmission Date: 20120403
  Serious: Yes (Other)
  Sender: FDA-Public Use
  Company Number: None

PATIENT
  Sex: Female
  Weight: 50.8029 kg

DRUGS (1)
  1. SULFAMETHOXAZOLE AND TRIMETHOPRIM DOUBLE STRENGTH [Suspect]
     Dosage: 1 TABLET EVERY 8 HOURS

REACTIONS (3)
  - FLATULENCE [None]
  - ANAL SPASM [None]
  - RECTAL DISCHARGE [None]
